FAERS Safety Report 9304793 (Version 1)
Quarter: 2013Q2

REPORT INFORMATION
  Report Type: Spontaneous
  Country: US (occurrence: None)
  Receive Date: 20130521
  Receipt Date: 20130521
  Transmission Date: 20140414
  Serious: Yes (Hospitalization)
  Sender: FDA-Public Use
  Company Number: None

PATIENT
  Age: 56 Year
  Sex: Male
  Weight: 87.3 kg

DRUGS (1)
  1. CISPLATIN [Suspect]
     Route: 042
     Dates: start: 20130114, end: 20130116

REACTIONS (1)
  - Renal failure acute [None]
